FAERS Safety Report 16651469 (Version 1)
Quarter: 2019Q3

REPORT INFORMATION
  Report Type: Spontaneous
  Country: US (occurrence: US)
  Receive Date: 20190730
  Receipt Date: 20190730
  Transmission Date: 20191004
  Serious: No
  Sender: FDA-Public Use
  Company Number: None

PATIENT
  Age: 39 Year
  Sex: Female
  Weight: 56.25 kg

DRUGS (2)
  1. NUVARING [Suspect]
     Active Substance: ETHINYL ESTRADIOL\ETONOGESTREL
     Dates: start: 20190401, end: 20190726
  2. FISH OIL [Concomitant]
     Active Substance: FISH OIL

REACTIONS (3)
  - Headache [None]
  - Mood swings [None]
  - Weight increased [None]

NARRATIVE: CASE EVENT DATE: 20190708
